FAERS Safety Report 18344471 (Version 1)
Quarter: 2020Q4

REPORT INFORMATION
  Report Type: Report from Study
  Country: None (occurrence: NO)
  Receive Date: 20201005
  Receipt Date: 20201005
  Transmission Date: 20210114
  Serious: Yes (Hospitalization)
  Sender: FDA-Public Use
  Company Number: NO-ABBVIE-20K-122-3586945-00

PATIENT
  Age: 77 Year
  Sex: Female

DRUGS (2)
  1. DUODOPA [Suspect]
     Active Substance: CARBIDOPA\LEVODOPA
  2. DUODOPA [Suspect]
     Active Substance: CARBIDOPA\LEVODOPA
     Indication: PRODUCT USED FOR UNKNOWN INDICATION
     Route: 050
     Dates: start: 2014

REACTIONS (6)
  - Communication disorder [Unknown]
  - Incorrect dose administered [Unknown]
  - Fall [Recovered/Resolved]
  - Device expulsion [Recovered/Resolved]
  - Euphoric mood [Unknown]
  - Fall [Unknown]

NARRATIVE: CASE EVENT DATE: 202008
